FAERS Safety Report 7973878-2 (Version None)
Quarter: 2011Q4

REPORT INFORMATION
  Report Type: 
  Country: None (occurrence: None)
  Receive Date: 20111130
  Receipt Date: 20111115
  Transmission Date: 20120403
  Serious: Yes (Hospitalization, Other)
  Sender: FDA-Public Use
  Company Number: DSA_48168_2011

PATIENT
  Sex: Female

DRUGS (6)
  1. ENALAPRIL MALEATE [Suspect]
     Indication: HYPERTENSION
     Dosage: (10 MG QD ORAL);
     Dates: start: 20101209, end: 20110104
  2. LAC-B [Concomitant]
  3. CANDESARTAN CILEXETIL [Suspect]
     Indication: HYPERTENSION
     Dosage: (4 MG QD ORAL)
     Route: 048
     Dates: start: 20101205, end: 20110104
  4. FAMOTIDINE [Suspect]
     Indication: PROPHYLAXIS AGAINST GASTROINTESTINAL ULCER
     Dosage: (10 MG BID ORAL);
     Route: 048
     Dates: start: 20101203, end: 20110105
  5. PHENOBARBITAL TAB [Suspect]
     Indication: BRAIN CONTUSION
     Dosage: (120 MG QD ORAL);
     Route: 048
     Dates: start: 20101205, end: 20110104
  6. MERISLON (MERISLON-BETAHISTINE MESILATE) 6 MG (NOT SPECIFIED) [Suspect]
     Indication: DIZZINESS
     Dosage: (6 MG TID ORAL)
     Route: 048
     Dates: start: 20101205, end: 20110105

REACTIONS (3)
  - LIVER DISORDER [None]
  - BODY TEMPERATURE INCREASED [None]
  - DRUG ERUPTION [None]
